FAERS Safety Report 8006958-6 (Version None)
Quarter: 2011Q4

REPORT INFORMATION
  Report Type: 
  Country: None (occurrence: None)
  Receive Date: 20111227
  Receipt Date: 20111125
  Transmission Date: 20120403
  Serious: Yes (Other)
  Sender: FDA-Public Use
  Company Number: ES-CELGENEUS-144-21880-11060749

PATIENT
  Sex: Female
  Weight: 75 kg

DRUGS (7)
  1. REVLIMID [Suspect]
     Indication: MULTIPLE MYELOMA
     Dosage: 25 MILLIGRAM
     Route: 048
     Dates: start: 20081020, end: 20100707
  2. CALCIUM [Concomitant]
     Indication: PROPHYLAXIS
     Dosage: 500 MILLIGRAM
     Route: 048
  3. LEVOTIROXIN [Concomitant]
     Indication: HYPOTHYROIDISM
     Dosage: 75 MILLIGRAM
     Route: 048
  4. REVLIMID [Suspect]
     Dosage: 25 MILLIGRAM
     Route: 048
     Dates: start: 20110530, end: 20110602
  5. AMLODIPINE [Concomitant]
     Dosage: 5 MILLIGRAM
     Route: 048
  6. FUROSEMIDE [Concomitant]
     Indication: PROPHYLAXIS
     Dosage: 10 MICROGRAM
     Route: 048
  7. REVLIMID [Suspect]
     Indication: MYELODYSPLASTIC SYNDROME
     Dosage: 25 MILLIGRAM
     Route: 048
     Dates: start: 20100708, end: 20110126

REACTIONS (1)
  - MYELODYSPLASTIC SYNDROME [None]
